FAERS Safety Report 9545855 (Version 2)
Quarter: 2013Q4

REPORT INFORMATION
  Report Type: Spontaneous
  Country: GB (occurrence: GB)
  Receive Date: 20130923
  Receipt Date: 20131108
  Transmission Date: 20140711
  Serious: Yes (Other)
  Sender: FDA-Public Use
  Company Number: GB-WATSON-2013-16586

PATIENT
  Age: 44 Year
  Sex: Female
  Weight: 81 kg

DRUGS (2)
  1. SERTRALINE HYDROCHLORIDE (UNKNOWN) [Suspect]
     Indication: ANXIETY
     Dosage: 100 MG, UNK
     Route: 048
     Dates: start: 20130426, end: 2013
  2. SERTRALINE HYDROCHLORIDE (UNKNOWN) [Suspect]
     Indication: STRESS
     Dosage: 50 MG, UNK
     Route: 048
     Dates: start: 20130301, end: 20130426

REACTIONS (2)
  - Hypoacusis [Unknown]
  - Tinnitus [Unknown]
